FAERS Safety Report 25266678 (Version 1)
Quarter: 2025Q2

REPORT INFORMATION
  Report Type: Spontaneous
  Country: GB (occurrence: GB)
  Receive Date: 20250505
  Receipt Date: 20250505
  Transmission Date: 20250716
  Serious: Yes (Other)
  Sender: ALCON
  Company Number: GB-MHRA-TPP58857594C6842137YC1745483712962

PATIENT
  Age: 83 Year
  Sex: Female
  Weight: 76 kg

DRUGS (5)
  1. TROPICAMIDE [Suspect]
     Active Substance: TROPICAMIDE
     Indication: Ill-defined disorder
     Route: 047
     Dates: start: 20250411
  2. AMLODIPINE [Concomitant]
     Active Substance: AMLODIPINE BESYLATE
     Indication: Ill-defined disorder
     Dosage: TAKE ONE DAILY IN THE MORNING
     Route: 065
     Dates: start: 20250103
  3. FERROUS SULFATE [Concomitant]
     Active Substance: FERROUS SULFATE
     Indication: Ill-defined disorder
     Route: 065
     Dates: start: 20250409, end: 20250410
  4. GLICLAZIDE [Concomitant]
     Active Substance: GLICLAZIDE
     Indication: Ill-defined disorder
     Dosage: ONE TABLET TWICE A DAY
     Route: 065
     Dates: start: 20241217
  5. METFORMIN [Concomitant]
     Active Substance: METFORMIN HYDROCHLORIDE
     Indication: Ill-defined disorder
     Dosage: TAKE TWO TABLETS TWICE A DAY
     Route: 065
     Dates: start: 20250103

REACTIONS (1)
  - Neurotrophic keratopathy [Unknown]
